FAERS Safety Report 9384896 (Version 1)
Quarter: 2013Q3

REPORT INFORMATION
  Report Type: Spontaneous
  Country: US (occurrence: US)
  Receive Date: 20130705
  Receipt Date: 20130705
  Transmission Date: 20140515
  Serious: No
  Sender: FDA-Public Use
  Company Number: US-PFIZER INC-2013198884

PATIENT
  Sex: Male

DRUGS (2)
  1. CHANTIX [Suspect]
     Dosage: UNK
     Route: 048
     Dates: start: 201306
  2. WELLBUTRIN SR [Suspect]
     Dosage: UNK

REACTIONS (4)
  - Mental status changes [Unknown]
  - Asthenia [Unknown]
  - Feeling abnormal [Unknown]
  - Nervousness [Unknown]
